FAERS Safety Report 5429276-9 (Version None)
Quarter: 2007Q3

REPORT INFORMATION
  Report Type: 
  Country: None (occurrence: None)
  Receive Date: 20070827
  Receipt Date: 20070827
  Transmission Date: 20080115
  Serious: Yes (Hospitalization)
  Sender: FDA-Public Use
  Company Number: None

PATIENT
  Sex: Female
  Weight: 56.8 kg

DRUGS (15)
  1. IRINOTECAN HCL [Suspect]
     Indication: GLIOBLASTOMA MULTIFORME
     Dosage: 100MG/M2 DAY 1, 8, 22, 29 IV
     Route: 042
     Dates: start: 20061106
  2. IRINOTECAN HCL [Suspect]
     Indication: GLIOBLASTOMA MULTIFORME
     Dosage: 100MG/M2 DAY 1, 8, 22, 29 IV
     Route: 042
     Dates: start: 20061113
  3. IRINOTECAN HCL [Suspect]
     Indication: GLIOBLASTOMA MULTIFORME
     Dosage: 100MG/M2 DAY 1, 8, 22, 29 IV
     Route: 042
     Dates: start: 20061127
  4. IRINOTECAN HCL [Suspect]
     Indication: GLIOBLASTOMA MULTIFORME
     Dosage: 100MG/M2 DAY 1, 8, 22, 29 IV
     Route: 042
     Dates: start: 20061204
  5. TEMODAR [Suspect]
     Indication: GLIOBLASTOMA MULTIFORME
     Dosage: 150MG/M2 DAYS 1-5 PO
     Route: 048
     Dates: start: 20061106, end: 20061110
  6. HYDROCHLOROTHIAZIDE [Concomitant]
  7. DEXAMETHASONE 0.5MG TAB [Concomitant]
  8. ZANTAC 150 [Concomitant]
  9. KEPPRA [Concomitant]
  10. DULCOLAX [Concomitant]
  11. SERTRALINE [Concomitant]
  12. MULTI-VITAMIN [Concomitant]
  13. GLUCOSAMINE [Concomitant]
  14. VITAMIN B-12 [Concomitant]
  15. LYSINE [Concomitant]

REACTIONS (5)
  - DYSPNOEA [None]
  - HEADACHE [None]
  - HYPONATRAEMIA [None]
  - PNEUMONIA [None]
  - PYREXIA [None]
